FAERS Safety Report 5291881-0 (Version None)
Quarter: 2007Q2

REPORT INFORMATION
  Report Type: 
  Country: None (occurrence: None)
  Receive Date: 20070410
  Receipt Date: 20070329
  Transmission Date: 20071010
  Serious: Yes (Death, Other)
  Sender: FDA-Public Use
  Company Number: HQWYE124129MAR07

PATIENT
  Age: 89 Year
  Sex: Female

DRUGS (1)
  1. HYPEN [Suspect]
     Dosage: UNKNOWN
     Dates: start: 20050601, end: 20050601

REACTIONS (3)
  - PANCYTOPENIA [None]
  - PSEUDOMEMBRANOUS COLITIS [None]
  - SEPSIS [None]
